FAERS Safety Report 5011596-3 (Version None)
Quarter: 2006Q2

REPORT INFORMATION
  Report Type: 
  Country: None (occurrence: None)
  Receive Date: 20060404
  Receipt Date: 20051103
  Transmission Date: 20061013
  Serious: No
  Sender: FDA-Public Use
  Company Number: USA0511112696

PATIENT
  Age: 49 Year
  Sex: Female

DRUGS (4)
  1. CYMBALTA [Suspect]
     Indication: ARTHRALGIA
     Dosage: 60 MG, DAILY (1/D)
     Dates: start: 20050501
  2. PROPOXYPHENE HYDROCHLORIDE [Concomitant]
  3. MOBIC [Concomitant]
  4. ALLERGY RELIEF MEDICINE [Concomitant]

REACTIONS (14)
  - ABDOMINAL DISTENSION [None]
  - ABNORMAL DREAMS [None]
  - BLEPHARITIS [None]
  - CONSTIPATION [None]
  - COUGH [None]
  - CRYING [None]
  - DRUG WITHDRAWAL SYNDROME [None]
  - EYE IRRITATION [None]
  - FEELING ABNORMAL [None]
  - INSOMNIA [None]
  - PAIN [None]
  - PRURITUS [None]
  - PRURITUS GENITAL [None]
  - SKIN DISCOMFORT [None]
